FAERS Safety Report 25786078 (Version 1)
Quarter: 2025Q3

REPORT INFORMATION
  Report Type: Spontaneous
  Country: IL (occurrence: IL)
  Receive Date: 20250910
  Receipt Date: 20250910
  Transmission Date: 20251021
  Serious: Yes (Hospitalization)
  Sender: MACLEODS
  Company Number: IL-MLMSERVICE-20250825-PI624997-00246-2

PATIENT

DRUGS (2)
  1. OLANZAPINE [Suspect]
     Active Substance: OLANZAPINE
     Indication: Catatonia
     Dosage: 10-15 MG DAILY
     Route: 065
     Dates: start: 2019, end: 2019
  2. OLANZAPINE [Suspect]
     Active Substance: OLANZAPINE
     Dosage: 2-3 WEEKS
     Route: 065
     Dates: start: 2019, end: 2019

REACTIONS (2)
  - Condition aggravated [Recovered/Resolved]
  - Catatonia [Recovered/Resolved]

NARRATIVE: CASE EVENT DATE: 20190101
